FAERS Safety Report 8490686-7 (Version None)
Quarter: 2012Q3

REPORT INFORMATION
  Report Type: 
  Country: None (occurrence: None)
  Receive Date: 20120705
  Receipt Date: 20120628
  Transmission Date: 20120928
  Serious: Yes (Other)
  Sender: FDA-Public Use
  Company Number: US-AMGEN-USASP2012041116

PATIENT
  Age: 68 Year
  Sex: Female

DRUGS (1)
  1. PROLIA [Suspect]
     Indication: HYPOCALCAEMIA
     Dosage: UNK
     Route: 065
     Dates: start: 20110324

REACTIONS (1)
  - HYPOCALCAEMIA [None]
